FAERS Safety Report 8663318 (Version 3)
Quarter: 2019Q1

REPORT INFORMATION
  Report Type: Spontaneous
  Country: JP (occurrence: JP)
  Receive Date: 20120713
  Receipt Date: 20190313
  Transmission Date: 20190418
  Serious: Yes (Death, Other)
  Sender: FDA-Public Use
  Company Number: PHHY2012JP059312

PATIENT
  Age: 53 Year
  Sex: Female

DRUGS (6)
  1. ZOMETA [Suspect]
     Active Substance: ZOLEDRONIC ACID
     Indication: METASTASES TO BONE
     Route: 041
     Dates: start: 200604
  2. OXYGEN. [Concomitant]
     Active Substance: OXYGEN
     Indication: PRODUCT USED FOR UNKNOWN INDICATION
     Route: 065
  3. AREDIA [Suspect]
     Active Substance: PAMIDRONATE DISODIUM
     Indication: BREAST CANCER
     Dosage: 90 MG, QMO
     Route: 041
     Dates: start: 200503, end: 200604
  4. AREDIA [Suspect]
     Active Substance: PAMIDRONATE DISODIUM
     Indication: METASTASES TO BONE
     Route: 041
     Dates: start: 200411, end: 200503
  5. PREDONINE [Concomitant]
     Active Substance: PREDNISOLONE
     Indication: RHEUMATOID ARTHRITIS
     Dosage: 10 MG, UNK
     Route: 048
  6. PREDONINE [Concomitant]
     Active Substance: PREDNISOLONE
     Dates: start: 200807

REACTIONS (10)
  - Periodontitis [Unknown]
  - Endocarditis [Unknown]
  - Arthritis bacterial [Unknown]
  - Osteomyelitis [Unknown]
  - Cardiovascular disorder [Fatal]
  - Renal tubular necrosis [Unknown]
  - Sepsis [Unknown]
  - Gastrointestinal haemorrhage [Fatal]
  - Pneumonia aspiration [Unknown]
  - Osteonecrosis of jaw [Unknown]
